FAERS Safety Report 24387408 (Version 7)
Quarter: 2024Q4

REPORT INFORMATION
  Report Type: Spontaneous
  Country: BG (occurrence: BG)
  Receive Date: 20241002
  Receipt Date: 20241121
  Transmission Date: 20250114
  Serious: Yes (Other)
  Sender: MYLAN
  Company Number: BG-SERVIER-S24011802

PATIENT
  Age: 79 Year
  Sex: Male

DRUGS (5)
  1. APIXABAN [Suspect]
     Active Substance: APIXABAN
     Indication: Myocardial ischaemia
     Dosage: 2.5 MILLIGRAM, BID (FOR THE PAST 7 MONTHS)
     Route: 048
  2. AMLODIPINE [Suspect]
     Active Substance: AMLODIPINE BESYLATE
     Indication: Hypertension
     Dosage: 2.5 MILLIGRAM, QD (5 MG, HALF A TABLET A DAY)
     Route: 048
     Dates: start: 1999
  3. AMLODIPINE [Suspect]
     Active Substance: AMLODIPINE BESYLATE
     Indication: Myocardial ischaemia
  4. PERINDOPRIL [Suspect]
     Active Substance: PERINDOPRIL
     Indication: Hypertension
     Dosage: 5 MILLIGRAM, BID (10 MILLIGRAM, QD)
     Route: 048
     Dates: start: 1999
  5. PERINDOPRIL [Suspect]
     Active Substance: PERINDOPRIL
     Indication: Myocardial ischaemia

REACTIONS (7)
  - Basal cell carcinoma [Recovered/Resolved]
  - Post inflammatory pigmentation change [Recovered/Resolved]
  - Ulcer [Unknown]
  - Skin ulcer [Unknown]
  - Wound [Unknown]
  - Suspected product contamination [Unknown]
  - Product use issue [Recovered/Resolved]

NARRATIVE: CASE EVENT DATE: 19990101
